FAERS Safety Report 20680452 (Version 1)
Quarter: 2022Q2

REPORT INFORMATION
  Report Type: Report from Study
  Country: US (occurrence: US)
  Receive Date: 20220406
  Receipt Date: 20220406
  Transmission Date: 20220721
  Serious: Yes (Other)
  Sender: FDA-Public Use
  Company Number: US-TAKEDA-US201833936

PATIENT
  Sex: Female

DRUGS (1)
  1. HUMAN IMMUNOGLOBULIN G [Suspect]
     Active Substance: HUMAN IMMUNOGLOBULIN G
     Indication: Primary immunodeficiency syndrome
     Dosage: UNK
     Route: 058

REACTIONS (9)
  - Spinal fracture [Unknown]
  - Gastrointestinal disorder [Unknown]
  - Osteoporosis [Unknown]
  - COVID-19 [Recovering/Resolving]
  - Gastroenteritis viral [Unknown]
  - Fall [Unknown]
  - Eye pain [Unknown]
  - Swelling [Unknown]
  - Diarrhoea [Unknown]
